FAERS Safety Report 7788305-8 (Version None)
Quarter: 2011Q3

REPORT INFORMATION
  Report Type: 
  Country: None (occurrence: None)
  Receive Date: 20110927
  Receipt Date: 20110914
  Transmission Date: 20111222
  Serious: Yes (Hospitalization)
  Sender: FDA-Public Use
  Company Number: 1000024078

PATIENT
  Age: 81 Year
  Sex: Male

DRUGS (13)
  1. OMEPRAZOLE [Concomitant]
  2. FINASTERIDE (FINASTERIDE) (FINASTERIDE) [Concomitant]
  3. PARACETAMOL (PARACETAMOL)(PARACETAMOL) [Concomitant]
  4. CITALOPRAM HYDROBROMIDE [Suspect]
     Dosage: 10 MG (10 MG, 1 IN 1 D),ORAL
     Route: 048
  5. MIDODRINE (MIDODRINE) (MIDODRINE) [Concomitant]
  6. CALCIUM AND COLECALCIFEROL(CALCIUM CARBONATE, CALCIUM PHOSPHATE, COLEC [Concomitant]
  7. ALENDRONATE (ALENDRONIC ACID)(ALENDRONIC ACID) [Concomitant]
  8. MOVICOL(MACROGOL 3350, POLYETHYLENE GLYCOL 3350, POTASSIUM CHLORIDE, S [Concomitant]
  9. PIPERACILLIN AND TAZOBACTAM(PIPERACILLIN, TAZOBACTAM)(PIPERACILLIN, TA [Concomitant]
  10. RASAGILINE [Suspect]
     Indication: PARKINSON'S DISEASE
     Dosage: 1 MG (1 MG, 1 IN 1 D),ORAL
     Route: 048
     Dates: start: 20091001
  11. DALTEPARIN (DALTEPARIN) ( DALTEPARIN) [Concomitant]
  12. ROPINIROLE [Concomitant]
  13. STALEVO (CARBIDOPA, ENTACAPONE, LEVODOPA)(CARBIDOPA, ENTACAPONE, LEVOD [Concomitant]

REACTIONS (8)
  - NEUROLEPTIC MALIGNANT SYNDROME [None]
  - HYPERPYREXIA [None]
  - MUSCLE RIGIDITY [None]
  - SEROTONIN SYNDROME [None]
  - HYPERTONIA [None]
  - HYPERHIDROSIS [None]
  - DRUG WITHDRAWAL SYNDROME [None]
  - BLOOD CREATINE PHOSPHOKINASE INCREASED [None]
